FAERS Safety Report 5044325-8 (Version None)
Quarter: 2006Q3

REPORT INFORMATION
  Report Type: 
  Country: None (occurrence: None)
  Receive Date: 20060706
  Receipt Date: 20030418
  Transmission Date: 20061208
  Serious: Yes (Other)
  Sender: FDA-Public Use
  Company Number: GR-SANOFI-SYNTHELABO-A01200301867

PATIENT
  Age: 33 Year
  Sex: Female

DRUGS (4)
  1. ZOLPIDEM TARTRATE [Suspect]
     Indication: INSOMNIA
     Dosage: 1-2 TABLETS EVERY MORNING
     Route: 048
  2. ZOLPIDEM TARTRATE [Suspect]
     Indication: EUPHORIC MOOD
     Dosage: 1-2 TABLETS EVERY MORNING
     Route: 048
  3. ZOLPIDEM TARTRATE [Suspect]
     Route: 048
  4. ZOLPIDEM TARTRATE [Suspect]
     Route: 048

REACTIONS (6)
  - DIZZINESS [None]
  - DRUG ABUSER [None]
  - DRUG DEPENDENCE [None]
  - DRUG TOLERANCE [None]
  - MEMORY IMPAIRMENT [None]
  - ROAD TRAFFIC ACCIDENT [None]
